APPROVED DRUG PRODUCT: BUTORPHANOL TARTRATE PRESERVATIVE FREE
Active Ingredient: BUTORPHANOL TARTRATE
Strength: 2MG/ML
Dosage Form/Route: INJECTABLE;INJECTION
Application: A075170 | Product #002
Applicant: HOSPIRA WORLDWIDE, INC
Approved: Sep 28, 1998 | RLD: No | RS: No | Type: DISCN